FAERS Safety Report 10143606 (Version 1)
Quarter: 2014Q2

REPORT INFORMATION
  Report Type: Spontaneous
  Country: AU (occurrence: AU)
  Receive Date: 20140430
  Receipt Date: 20140430
  Transmission Date: 20141212
  Serious: Yes (Hospitalization)
  Sender: FDA-Public Use
  Company Number: AU-ASTRAZENECA-2014SE27908

PATIENT
  Age: 23740 Day
  Sex: 0

DRUGS (3)
  1. COSUDEX [Suspect]
     Route: 048
     Dates: start: 20140303
  2. LUCRIN [Suspect]
     Route: 065
     Dates: start: 20140301
  3. ASPIRIN [Concomitant]

REACTIONS (3)
  - Pain in extremity [Unknown]
  - Peripheral swelling [Unknown]
  - Erythema [Unknown]
